FAERS Safety Report 18154218 (Version 2)
Quarter: 2020Q3

REPORT INFORMATION
  Report Type: Other
  Country: DE (occurrence: DE)
  Receive Date: 20200816
  Receipt Date: 20200819
  Transmission Date: 20201103
  Serious: Yes (Other)
  Sender: FDA-Public Use
  Company Number: DE-ROCHE-2579021

PATIENT
  Age: 28 Year
  Sex: Female
  Weight: 85 kg

DRUGS (13)
  1. AERIUS [Concomitant]
     Route: 048
     Dates: start: 20180813, end: 20180815
  2. DEKRISTOL [Concomitant]
     Active Substance: CHOLECALCIFEROL
     Indication: VITAMIN D DEFICIENCY
     Route: 048
     Dates: start: 201406
  3. OCRELIZUMAB. [Suspect]
     Active Substance: OCRELIZUMAB
     Indication: MULTIPLE SCLEROSIS
     Route: 042
     Dates: start: 20180814, end: 20180828
  4. RANITIDINE. [Concomitant]
     Active Substance: RANITIDINE
     Route: 048
     Dates: start: 20180827, end: 20180829
  5. RANITIDINE. [Concomitant]
     Active Substance: RANITIDINE
     Route: 048
     Dates: start: 20190203, end: 20190205
  6. OCRELIZUMAB. [Suspect]
     Active Substance: OCRELIZUMAB
     Route: 042
     Dates: start: 20190204
  7. PREDNISOLUT [Concomitant]
     Active Substance: PREDNISOLONE
     Route: 042
     Dates: start: 20190204, end: 20190204
  8. RANITIDINE. [Concomitant]
     Active Substance: RANITIDINE
     Indication: PROPHYLAXIS
     Dosage: DVERSE REACTION PROPHYLAXIS DURING OCREVUS ADMINISTRATION
     Route: 048
     Dates: start: 20180813, end: 20180815
  9. AERIUS [Concomitant]
     Route: 048
     Dates: start: 20180827, end: 20180829
  10. PARACETAMOL [Concomitant]
     Active Substance: ACETAMINOPHEN
     Indication: PAIN
     Dosage: PAIN; AFTER DELIVERY IN MAY/2018
     Route: 048
     Dates: start: 201805, end: 201805
  11. AERIUS [Concomitant]
     Indication: PROPHYLAXIS
     Dosage: ADVERSE REACTION PROPHYLAXIS DURING OCREVUS ADMINISTRATION
     Route: 048
     Dates: start: 20190203, end: 20190205
  12. PREDNISOLUT [Concomitant]
     Active Substance: PREDNISOLONE
     Indication: PROPHYLAXIS
     Dosage: ADVERSE REACTION PROPHYLAXIS DURING OCREVUS ADMINISTRATION
     Route: 042
     Dates: start: 20180814, end: 20180814
  13. PREDNISOLUT [Concomitant]
     Active Substance: PREDNISOLONE
     Route: 042
     Dates: start: 20180828, end: 20180828

REACTIONS (2)
  - Uhthoff^s phenomenon [Unknown]
  - Periorbital pain [Unknown]

NARRATIVE: CASE EVENT DATE: 20191104
